FAERS Safety Report 21564772 (Version 1)
Quarter: 2022Q4

REPORT INFORMATION
  Report Type: Spontaneous
  Country: US (occurrence: US)
  Receive Date: 20221108
  Receipt Date: 20221108
  Transmission Date: 20230113
  Serious: No
  Sender: FDA-Public Use
  Company Number: US-drreddys-SPO/USA/22/0156612

PATIENT
  Age: 22 Year
  Sex: Female

DRUGS (1)
  1. ZENATANE [Suspect]
     Active Substance: ISOTRETINOIN
     Indication: Acne
     Dosage: RMA ISSUE DATE: 22/JULY/2022 05:02:18 PM, 22/AUGUST/2022 02:20:19 PM, 22/SEPTEMBER/2022 10:28:30 AM

REACTIONS (1)
  - Laboratory test abnormal [Unknown]
